FAERS Safety Report 19695654 (Version 4)
Quarter: 2021Q4

REPORT INFORMATION
  Report Type: Spontaneous
  Country: US (occurrence: US)
  Receive Date: 20210813
  Receipt Date: 20211125
  Transmission Date: 20220304
  Serious: No
  Sender: FDA-Public Use
  Company Number: US-BIOGEN-2021BI01030595

PATIENT
  Sex: Female

DRUGS (7)
  1. VUMERITY [Suspect]
     Active Substance: DIROXIMEL FUMARATE
     Indication: Multiple sclerosis
     Route: 065
     Dates: start: 20210630, end: 2021
  2. VUMERITY [Suspect]
     Active Substance: DIROXIMEL FUMARATE
     Dosage: FOR THE FIRST 7 DAYS
     Route: 048
  3. VUMERITY [Suspect]
     Active Substance: DIROXIMEL FUMARATE
     Dosage: STARTING DOSE
     Route: 048
     Dates: start: 20210625, end: 20210806
  4. PRAMIPEXOLE DIHYDROCHLORI [Concomitant]
     Route: 065
  5. LANTUS [Concomitant]
     Active Substance: INSULIN GLARGINE
     Route: 065
  6. METFORMIN HYDROCHLORIDE [Concomitant]
     Active Substance: METFORMIN HYDROCHLORIDE
     Route: 065
  7. SERTRALINE HYDROCHLORIDE [Concomitant]
     Active Substance: SERTRALINE HYDROCHLORIDE
     Route: 065

REACTIONS (5)
  - Headache [Unknown]
  - Abdominal pain upper [Not Recovered/Not Resolved]
  - Nausea [Unknown]
  - Gastrointestinal disorder [Unknown]
  - Diarrhoea [Recovered/Resolved]

NARRATIVE: CASE EVENT DATE: 20210101
